FAERS Safety Report 12478538 (Version 1)
Quarter: 2016Q2

REPORT INFORMATION
  Report Type: Spontaneous
  Country: US (occurrence: US)
  Receive Date: 20160618
  Receipt Date: 20160618
  Transmission Date: 20160815
  Serious: No
  Sender: FDA-Public Use
  Company Number: US-009507513-1606USA001644

PATIENT
  Sex: Female

DRUGS (1)
  1. PROPECIA [Suspect]
     Active Substance: FINASTERIDE

REACTIONS (3)
  - Exposure via body fluid [Unknown]
  - Exposure during pregnancy [Unknown]
  - No adverse event [Unknown]
